FAERS Safety Report 10375271 (Version 1)
Quarter: 2014Q3

REPORT INFORMATION
  Report Type: Spontaneous
  Country: US (occurrence: None)
  Receive Date: 20140808
  Receipt Date: 20140808
  Transmission Date: 20150326
  Serious: Yes (Disabling, Other)
  Sender: FDA-Public Use
  Company Number: None

PATIENT
  Age: 66 Year
  Sex: Female
  Weight: 74.39 kg

DRUGS (1)
  1. METOPROLOL ER [Suspect]
     Active Substance: METOPROLOL SUCCINATE
     Indication: HYPERTENSION
     Dosage: 1 PILL ONCE DAILY TAKEN BY MOUTH
     Route: 048
     Dates: start: 20140807, end: 20140807

REACTIONS (11)
  - Suicidal ideation [None]
  - Gingival disorder [None]
  - Asthenia [None]
  - Dyspnoea [None]
  - Dizziness [None]
  - Impaired driving ability [None]
  - Vomiting [None]
  - Weight increased [None]
  - Depression [None]
  - Alopecia [None]
  - Toothache [None]

NARRATIVE: CASE EVENT DATE: 20140807
